FAERS Safety Report 15666375 (Version 1)
Quarter: 2018Q4

REPORT INFORMATION
  Report Type: Spontaneous
  Country: US (occurrence: US)
  Receive Date: 20181128
  Receipt Date: 20181128
  Transmission Date: 20190205
  Serious: Yes (Hospitalization, Disabling)
  Sender: FDA-Public Use
  Company Number: US-JNJFOC-20181136768

PATIENT
  Age: 61 Year
  Sex: Female

DRUGS (2)
  1. INVOKAMET [Suspect]
     Active Substance: CANAGLIFLOZIN\METFORMIN HYDROCHLORIDE
     Indication: PRODUCT USED FOR UNKNOWN INDICATION
     Route: 048
  2. INVOKANA [Suspect]
     Active Substance: CANAGLIFLOZIN
     Indication: TYPE 2 DIABETES MELLITUS
     Route: 048
     Dates: start: 20160126

REACTIONS (4)
  - Gangrene [Unknown]
  - Cellulitis [Recovered/Resolved]
  - Diabetic foot infection [Unknown]
  - Leg amputation [Unknown]

NARRATIVE: CASE EVENT DATE: 201701
